FAERS Safety Report 6342001-2 (Version None)
Quarter: 2009Q3

REPORT INFORMATION
  Report Type: 
  Country: None (occurrence: None)
  Receive Date: 20090904
  Receipt Date: 20090827
  Transmission Date: 20100115
  Serious: Yes (Hospitalization)
  Sender: FDA-Public Use
  Company Number: NL-AMGEN-US361975

PATIENT
  Age: 57 Year
  Sex: Female
  Weight: 85 kg

DRUGS (10)
  1. ENBREL [Suspect]
     Indication: RHEUMATOID ARTHRITIS
     Route: 058
     Dates: start: 20090616, end: 20090817
  2. METFORMIN HCL [Concomitant]
     Indication: DIABETES MELLITUS
     Dosage: 2 TIMES A DAY 1 TABLET
     Route: 048
     Dates: start: 19980101
  3. METOPROLOL SUCCINATE [Concomitant]
     Indication: ANGINA PECTORIS
     Dosage: 1 X 1 TABLET  A DAY
     Route: 048
     Dates: start: 19930101
  4. ARAVA [Concomitant]
     Indication: RHEUMATOID ARTHRITIS
     Route: 048
  5. OMEPRAZOLE [Concomitant]
     Indication: PROPHYLAXIS
     Dosage: 1 X 1 CAPSULE A DAY
     Route: 048
     Dates: start: 19930101
  6. SIMVASTATIN [Concomitant]
     Indication: CARDIAC DISORDER
     Dosage: 1 X 1 TABLET A DAY
     Route: 048
     Dates: start: 19920101
  7. ARCOXIA [Concomitant]
     Indication: RHEUMATOID ARTHRITIS
     Route: 065
     Dates: start: 20020101
  8. ASPIRIN [Concomitant]
     Indication: CARDIAC DISORDER
     Dosage: 1 X 1 TABLET A DAY
     Route: 048
     Dates: start: 19930101
  9. TOLBUTAMIDE [Concomitant]
     Indication: DIABETES MELLITUS
     Dosage: 3 TIMES A DAY 1 TABLET
     Route: 048
     Dates: start: 19980101
  10. ENALAPRIL MALEATE [Concomitant]
     Indication: DIABETES MELLITUS
     Dosage: 1 X 1 TABLET A DAY
     Route: 048
     Dates: start: 19980101

REACTIONS (8)
  - CONDITION AGGRAVATED [None]
  - DYSPNOEA [None]
  - DYSPNOEA EXERTIONAL [None]
  - FATIGUE [None]
  - HAEMOGLOBIN DECREASED [None]
  - MYALGIA [None]
  - RENAL IMPAIRMENT [None]
  - SJOGREN'S SYNDROME [None]
